FAERS Safety Report 9302880 (Version 1)
Quarter: 2013Q2

REPORT INFORMATION
  Report Type: Spontaneous
  Country: US (occurrence: US)
  Receive Date: 20130522
  Receipt Date: 20130522
  Transmission Date: 20140414
  Serious: Yes (Hospitalization)
  Sender: FDA-Public Use
  Company Number: US-BAYER-2013-063353

PATIENT
  Age: 37 Year
  Sex: Female

DRUGS (7)
  1. YASMIN [Suspect]
  2. MULTIVITAMIN [Concomitant]
  3. IRON SULFATE [Concomitant]
  4. DEMEROL [Concomitant]
  5. METAMUCIL [Concomitant]
  6. BEXTRA [Concomitant]
  7. RED BLOOD CELLS [Concomitant]

REACTIONS (2)
  - Pulmonary embolism [None]
  - Deep vein thrombosis [None]
